FAERS Safety Report 9438478 (Version 2)
Quarter: 2013Q4

REPORT INFORMATION
  Report Type: Spontaneous
  Country: FR (occurrence: FR)
  Receive Date: 20130802
  Receipt Date: 20131010
  Transmission Date: 20140711
  Serious: Yes (Other)
  Sender: FDA-Public Use
  Company Number: FR-B.I. PHARMACEUTICALS,INC./RIDGEFIELD-2013-FF-02031FF

PATIENT
  Sex: Male

DRUGS (2)
  1. VIRAMUNE [Suspect]
  2. TRUVADA [Suspect]
     Dates: start: 20061129, end: 20130708

REACTIONS (1)
  - Renal failure [Not Recovered/Not Resolved]
